FAERS Safety Report 18188172 (Version 1)
Quarter: 2020Q3

REPORT INFORMATION
  Report Type: Report from Study
  Country: DE (occurrence: DE)
  Receive Date: 20200824
  Receipt Date: 20200824
  Transmission Date: 20201103
  Serious: Yes (Hospitalization)
  Sender: FDA-Public Use
  Company Number: DE-ROCHE-2662742

PATIENT
  Age: 69 Year
  Sex: Female
  Weight: 58 kg

DRUGS (5)
  1. LEUCOVORIN. [Suspect]
     Active Substance: LEUCOVORIN
     Indication: GASTRIC CANCER
     Dosage: LAST DOSE OF THE STUDY DRUG LEUCOVORIN PRIOR TO SAE ONSET : 13/DEC/2019
     Route: 065
  2. DOCETAXEL. [Suspect]
     Active Substance: DOCETAXEL
     Indication: GASTRIC CANCER
     Dosage: LAST DOSE OF THE STUDY DRUG DOCETAXEL PRIOR TO SAE ONSET : 13/DEC/2019
     Route: 065
  3. FLUOROURACIL. [Suspect]
     Active Substance: FLUOROURACIL
     Indication: GASTRIC CANCER
     Dosage: LAST DOSE OF THE STUDY DRUG FLUOROURACIL PRIOR TO SAE ONSET : 13/DEC/2019
     Route: 065
  4. ATEZOLIZUMAB. [Suspect]
     Active Substance: ATEZOLIZUMAB
     Indication: GASTRIC CANCER
     Dosage: LAST DOSE OF THE STUDY DRUG ATEZOLIZUMAB PRIOR TO SAE ONSET : 13/DEC/2019
     Route: 041
  5. OXALIPLATIN. [Suspect]
     Active Substance: OXALIPLATIN
     Indication: GASTRIC CANCER
     Dosage: LAST DOSE OF THE STUDY DRUG OXALIPLATIN PRIOR TO SAE ONSET : 13/DEC/2019
     Route: 065

REACTIONS (1)
  - Leukopenia [Recovered/Resolved]

NARRATIVE: CASE EVENT DATE: 20191227
